FAERS Safety Report 6593164-5 (Version None)
Quarter: 2010Q1

REPORT INFORMATION
  Report Type: 
  Country: None (occurrence: None)
  Receive Date: 20100222
  Receipt Date: 20100210
  Transmission Date: 20100710
  Serious: Yes (Other)
  Sender: FDA-Public Use
  Company Number: PHHY2009BR22090

PATIENT
  Sex: Female
  Weight: 80 kg

DRUGS (3)
  1. DIOVAN [Suspect]
     Indication: HYPERTENSION
     Dosage: 80 MG/DAY
     Route: 048
     Dates: start: 20070101
  2. DIOVAN [Suspect]
     Dosage: 1 DF, BID
     Route: 048
     Dates: start: 20090530
  3. CAPTOPRIL [Concomitant]
     Indication: BLOOD PRESSURE

REACTIONS (5)
  - BLOOD PRESSURE FLUCTUATION [None]
  - BLOOD PRESSURE INCREASED [None]
  - DIZZINESS [None]
  - MYOCARDIAL INFARCTION [None]
  - PARAESTHESIA ORAL [None]
